FAERS Safety Report 8398723-5 (Version None)
Quarter: 2012Q2

REPORT INFORMATION
  Report Type: 
  Country: None (occurrence: None)
  Receive Date: 20120524
  Receipt Date: 20120515
  Transmission Date: 20120825
  Serious: No
  Sender: FDA-Public Use
  Company Number: 2012SP025411

PATIENT
  Age: 51 Year

DRUGS (1)
  1. SAPHRIS [Suspect]
     Indication: SCHIZOPHRENIA
     Dosage: SL
     Route: 060
     Dates: start: 20120503, end: 20120509

REACTIONS (2)
  - SWOLLEN TONGUE [None]
  - DYSGEUSIA [None]
